FAERS Safety Report 5713120-6 (Version None)
Quarter: 2008Q2

REPORT INFORMATION
  Report Type: 
  Country: None (occurrence: None)
  Receive Date: 20080422
  Receipt Date: 20070425
  Transmission Date: 20081010
  Serious: No
  Sender: FDA-Public Use
  Company Number: US-BRISTOL-MYERS SQUIBB COMPANY-13759873

PATIENT
  Age: 69 Year
  Sex: Female
  Weight: 63 kg

DRUGS (3)
  1. HYDREA [Suspect]
     Indication: PLATELET COUNT INCREASED
     Route: 048
  2. ZANTAC [Concomitant]
  3. CALCIUM [Concomitant]

REACTIONS (4)
  - COUGH [None]
  - NAIL PIGMENTATION [None]
  - SKIN CHAPPED [None]
  - SKIN EXFOLIATION [None]
